FAERS Safety Report 9824441 (Version 3)
Quarter: 2015Q3

REPORT INFORMATION
  Report Type: Spontaneous
  Country: US (occurrence: US)
  Receive Date: 20140116
  Receipt Date: 20150810
  Transmission Date: 20151125
  Serious: No
  Sender: FDA-Public Use
  Company Number: US-GILEAD-2011-0039648

PATIENT
  Age: 76 Year
  Sex: Female
  Weight: 84.82 kg

DRUGS (14)
  1. LISINOPRIL. [Concomitant]
     Active Substance: LISINOPRIL
  2. REVATIO [Concomitant]
     Active Substance: SILDENAFIL CITRATE
  3. FUROSEMIDE. [Concomitant]
     Active Substance: FUROSEMIDE
  4. WARFARIN [Concomitant]
     Active Substance: WARFARIN
  5. OXYGEN. [Concomitant]
     Active Substance: OXYGEN
  6. IPRATROPIUM BROMIDE/SALBUTAMOL SULFATE [Concomitant]
  7. SPIRONOLACTONE. [Concomitant]
     Active Substance: SPIRONOLACTONE
  8. SPIRIVA [Concomitant]
     Active Substance: TIOTROPIUM BROMIDE MONOHYDRATE
  9. LETAIRIS [Suspect]
     Active Substance: AMBRISENTAN
     Indication: PULMONARY HYPERTENSION
     Route: 048
     Dates: start: 20101028
  10. ALLOPURINOL. [Concomitant]
     Active Substance: ALLOPURINOL
  11. ATENOLOL. [Concomitant]
     Active Substance: ATENOLOL
  12. PEPCID [Concomitant]
     Active Substance: FAMOTIDINE
  13. MYCOLOG CREAM [Concomitant]
  14. K-DUR [Concomitant]
     Active Substance: POTASSIUM CHLORIDE

REACTIONS (1)
  - Pruritus [Not Recovered/Not Resolved]

NARRATIVE: CASE EVENT DATE: 20110408
